FAERS Safety Report 18474818 (Version 1)
Quarter: 2020Q4

REPORT INFORMATION
  Report Type: Spontaneous
  Country: US (occurrence: US)
  Receive Date: 20201106
  Receipt Date: 20201106
  Transmission Date: 20210114
  Serious: No
  Sender: FDA-Public Use
  Company Number: US-VERTEX PHARMACEUTICALS-2020-021852

PATIENT
  Sex: Female
  Weight: 30.39 kg

DRUGS (1)
  1. SYMDEKO [Suspect]
     Active Substance: IVACAFTOR\TEZACAFTOR
     Indication: CYSTIC FIBROSIS
     Dosage: 100/150 MG (1 YELLOW TABLET QAM AND 1 BLUE TABLET QPM)
     Route: 048

REACTIONS (1)
  - Sinusitis [Unknown]
